FAERS Safety Report 17487734 (Version 1)
Quarter: 2020Q1

REPORT INFORMATION
  Report Type: Spontaneous
  Country: US (occurrence: US)
  Receive Date: 20200228
  Receipt Date: 20200228
  Transmission Date: 20200409
  Serious: Yes (Other)
  Sender: FDA-Public Use
  Company Number: 2020-US-001924

PATIENT
  Age: 41 Year
  Sex: Female
  Weight: 68.04 kg

DRUGS (4)
  1. ORIGINAL FORMULA HEMP EXTRACT OLIVE OIL FLAVOR CHARLOTTES WEB [CBD] [Suspect]
     Active Substance: CANNABIDIOL\HERBALS
     Indication: SEIZURE
     Route: 048
  2. ARMOUR THYROID [Concomitant]
     Active Substance: THYROID, PORCINE
  3. IRON SUPPLEMENT [Concomitant]
     Active Substance: IRON
  4. VITAMIN D [Concomitant]
     Active Substance: VITAMIN D NOS

REACTIONS (3)
  - Self-medication [None]
  - Treatment noncompliance [None]
  - Seizure [None]

NARRATIVE: CASE EVENT DATE: 20191101
